FAERS Safety Report 11587631 (Version 1)
Quarter: 2015Q4

REPORT INFORMATION
  Report Type: Spontaneous
  Country: US (occurrence: US)
  Receive Date: 20151001
  Receipt Date: 20151001
  Transmission Date: 20160304
  Serious: Yes (Life-Threatening, Other)
  Sender: FDA-Public Use
  Company Number: US-MYLANLABS-2015M1032142

PATIENT

DRUGS (2)
  1. CARBAMAZEPINE. [Suspect]
     Active Substance: CARBAMAZEPINE
     Indication: EPILEPSY
     Dosage: UNK
  2. LEVETIRACETAM. [Suspect]
     Active Substance: LEVETIRACETAM
     Indication: EPILEPSY
     Dosage: UNK
     Route: 065

REACTIONS (3)
  - Generalised tonic-clonic seizure [Recovered/Resolved]
  - Seizure [Recovered/Resolved]
  - Road traffic accident [Recovered/Resolved]

NARRATIVE: CASE EVENT DATE: 201201
